FAERS Safety Report 9322978 (Version 2)
Quarter: 2014Q1

REPORT INFORMATION
  Report Type: Spontaneous
  Country: US (occurrence: US)
  Receive Date: 20130603
  Receipt Date: 20140206
  Transmission Date: 20141002
  Serious: Yes (Hospitalization)
  Sender: FDA-Public Use
  Company Number: US-B.I. PHARMACEUTICALS,INC./RIDGEFIELD-2013-BI-14720BP

PATIENT
  Age: 66 Year
  Sex: Male
  Weight: 60.78 kg

DRUGS (12)
  1. PRADAXA [Suspect]
     Indication: PRODUCT USED FOR UNKNOWN INDICATION
     Dates: start: 20111111, end: 20120402
  2. XANAX [Concomitant]
  3. ZITHROMAX [Concomitant]
  4. DIGOXIN [Concomitant]
  5. PEPCID [Concomitant]
  6. LASIX [Concomitant]
  7. LANTUS [Concomitant]
  8. LISINOPRIL [Concomitant]
  9. LOPRESSOR [Concomitant]
  10. ZOSYN [Concomitant]
  11. ZOCOR [Concomitant]
  12. AMBIEN [Concomitant]

REACTIONS (2)
  - Gastrointestinal haemorrhage [Unknown]
  - Haemoptysis [Unknown]
